FAERS Safety Report 6982376-4 (Version None)
Quarter: 2010Q3

REPORT INFORMATION
  Report Type: 
  Country: None (occurrence: None)
  Receive Date: 20100914
  Receipt Date: 20100129
  Transmission Date: 20110219
  Serious: Yes (Other)
  Sender: FDA-Public Use
  Company Number: US-PFIZER INC-2009308959

PATIENT
  Sex: Female
  Weight: 90.703 kg

DRUGS (3)
  1. LYRICA [Suspect]
     Indication: PARAESTHESIA
     Dosage: 50 MG, 1X/DAY
     Route: 048
     Dates: start: 20090504, end: 20090902
  2. CHANTIX [Concomitant]
  3. ATIVAN [Concomitant]

REACTIONS (1)
  - HALLUCINATION [None]
